FAERS Safety Report 6405122-1 (Version None)
Quarter: 2009Q4

REPORT INFORMATION
  Report Type: 
  Country: None (occurrence: None)
  Receive Date: 20091019
  Receipt Date: 20091013
  Transmission Date: 20100525
  Serious: Yes (Other)
  Sender: FDA-Public Use
  Company Number: BR-JNJFOC-20091004578

PATIENT
  Age: 40 Year
  Sex: Male
  Weight: 68 kg

DRUGS (3)
  1. TYLEX [Suspect]
     Dates: start: 20091010, end: 20091012
  2. TYLEX [Suspect]
     Indication: BONE PAIN
     Dates: start: 20091010, end: 20091012
  3. UNKNOWN MEDICATION [Concomitant]
     Route: 065

REACTIONS (4)
  - ABDOMINAL PAIN UPPER [None]
  - COLD SWEAT [None]
  - DYSPNOEA [None]
  - PALLOR [None]
